FAERS Safety Report 9263016 (Version 1)
Quarter: 2013Q2

REPORT INFORMATION
  Report Type: Spontaneous
  Country: IT (occurrence: None)
  Receive Date: 20130426
  Receipt Date: 20130426
  Transmission Date: 20140414
  Serious: Yes (Other)
  Sender: FDA-Public Use
  Company Number: 2013AP004665

PATIENT
  Age: 78 Year
  Sex: Female

DRUGS (7)
  1. LEVOFLOXACIN (LEVOFLOXACIN) [Suspect]
     Indication: BACTERIAL INFECTION
     Route: 048
     Dates: start: 20130227, end: 20130303
  2. REPAGLINIDE (REPAGLINIDE) [Suspect]
     Indication: TYPE 2 DIABETES MELLITUS
     Route: 048
     Dates: start: 20030101, end: 20130303
  3. LASIX/00032601/(FUROSEMIDE) [Concomitant]
  4. PLAVIX/01220701/(CLOPIDOGREL) [Concomitant]
  5. CITALOPRAM (CITALOPRAM) [Concomitant]
  6. METFORMIN (METFORMIN) [Concomitant]
  7. PANTOPRAZOLE SODIUM (PANTOPRAZOLE SODIUM) [Concomitant]

REACTIONS (2)
  - Hypoglycaemic coma [None]
  - Drug interaction [None]
